FAERS Safety Report 7008080-4 (Version None)
Quarter: 2010Q3

REPORT INFORMATION
  Report Type: 
  Country: None (occurrence: None)
  Receive Date: 20100920
  Receipt Date: 20100908
  Transmission Date: 20110219
  Serious: Yes (Hospitalization, Other)
  Sender: FDA-Public Use
  Company Number: 693573

PATIENT
  Age: 57 Year
  Sex: Female

DRUGS (13)
  1. CYTARABINE [Suspect]
     Indication: ACUTE LYMPHOCYTIC LEUKAEMIA
     Dosage: 75 MG/M2 MILLIGRAM (S)/SQ. METER,  500 MG/M 2 MILLIGRAM(S) /SQ. METER
  2. METHOTREXATE [Suspect]
     Indication: ACUTE LYMPHOCYTIC LEUKAEMIA
     Dosage: 12 MG MILLIGRAM(S) INTRATHECAL
     Route: 037
  3. VINCRISTINE SULFATE [Suspect]
     Indication: ACUTE LYMPHOCYTIC LEUKAEMIA
     Dosage: 1.5 MG/M 2 MILLIGRAM(S)/SQ. METER
  4. DAUNORUBICIN HCL [Suspect]
     Indication: ACUTE LYMPHOCYTIC LEUKAEMIA
     Dosage: 25 MG/M 2 MILLIGRAM(S) SQ. METER
  5. PREDNISOLONE [Suspect]
     Indication: ACUTE LYMPHOCYTIC LEUKAEMIA
     Dosage: 60 MG/M 2 MILLIGRAM(S) SQ. METER
  6. ELSPAR [Suspect]
     Indication: ACUTE LYMPHOCYTIC LEUKAEMIA
     Dosage: 5000 U/M^2/DAY
  7. CYCLOPHOSPHAMIDE [Suspect]
     Indication: ACUTE LYMPHOCYTIC LEUKAEMIA
     Dosage: 650 MG/M 2 MILLIGRAM(S) SQ. METER
  8. MERCAPTOPURINE [Suspect]
     Indication: ACUTE LYMPHOCYTIC LEUKAEMIA
     Dosage: 60 MG/M 2 MILLIGRAM(S)/SQ. METER
  9. MITOXANTRONE [Suspect]
     Indication: ACUTE LYMPHOCYTIC LEUKAEMIA
     Dosage: 12 MG/M 2 MILLIGRAM(S)/SQ. METER
  10. ETOPOSIDE [Suspect]
     Indication: ACUTE LYMPHOCYTIC LEUKAEMIA
     Dosage: 200 MG/M 2 MILLIGRAM (S) /SQ. METER
  11. AMPHOTERICIN B [Concomitant]
  12. FLUCONAZOLE [Concomitant]
  13. BLOOD AND RELATED PRODUCTS [Concomitant]

REACTIONS (7)
  - ALANINE AMINOTRANSFERASE INCREASED [None]
  - BACTERIAL INFECTION [None]
  - FEBRILE NEUTROPENIA [None]
  - HEPATIC CANDIDIASIS [None]
  - HEPATIC LESION [None]
  - HEPATITIS ACUTE [None]
  - HEPATITIS B SURFACE ANTIGEN POSITIVE [None]
